FAERS Safety Report 7544212-7 (Version None)
Quarter: 2011Q2

REPORT INFORMATION
  Report Type: 
  Country: None (occurrence: None)
  Receive Date: 20110613
  Receipt Date: 20060911
  Transmission Date: 20111010
  Serious: Yes (Hospitalization)
  Sender: FDA-Public Use
  Company Number: PHNR2006AU01141

PATIENT
  Sex: Male

DRUGS (3)
  1. CLOZAPINE [Suspect]
     Dosage: 12.5-700MG NOCTE
     Route: 048
     Dates: start: 19940421, end: 20060830
  2. CLOZAPINE [Suspect]
     Dosage: 12.5 - 450MG
     Route: 048
     Dates: start: 20060903
  3. CLOZAPINE [Suspect]
     Dosage: 300 MG STAT DOSE
     Route: 048
     Dates: start: 20060902, end: 20060902

REACTIONS (1)
  - PERSECUTORY DELUSION [None]
